FAERS Safety Report 5652881-1 (Version None)
Quarter: 2008Q1

REPORT INFORMATION
  Report Type: 
  Country: None (occurrence: None)
  Receive Date: 20080306
  Receipt Date: 20080222
  Transmission Date: 20080703
  Serious: Yes (Hospitalization)
  Sender: FDA-Public Use
  Company Number: FR-SANOFI-SYNTHELABO-A02200800698

PATIENT
  Sex: Female

DRUGS (12)
  1. INIPOMP [Concomitant]
     Indication: DRUG USE FOR UNKNOWN INDICATION
     Route: 048
  2. KARDEGIC [Concomitant]
     Indication: ARTERIAL BYPASS OPERATION
     Route: 048
  3. INSULATARD [Concomitant]
     Indication: TYPE 1 DIABETES MELLITUS
     Dosage: 24 IU
     Route: 058
  4. CORVASAL [Concomitant]
     Indication: DRUG USE FOR UNKNOWN INDICATION
     Route: 048
  5. LASILIX [Concomitant]
     Indication: HYPERTENSION
     Route: 048
  6. SERESTA [Concomitant]
     Indication: INSOMNIA
     Route: 048
     Dates: start: 20071009, end: 20071010
  7. DIFFU K [Concomitant]
     Route: 048
  8. CERIS [Suspect]
     Indication: DRUG USE FOR UNKNOWN INDICATION
     Dosage: UNK
     Route: 048
     Dates: end: 20071009
  9. KEPPRA [Suspect]
     Indication: EPILEPSY
     Route: 048
     Dates: start: 20070701, end: 20071028
  10. KEPPRA [Suspect]
     Dosage: 250 MG
     Route: 048
     Dates: start: 20071029, end: 20071107
  11. STILNOX [Suspect]
     Indication: INSOMNIA
     Route: 048
     Dates: end: 20071009
  12. IDEOS [Suspect]
     Indication: DRUG USE FOR UNKNOWN INDICATION
     Dosage: UNK
     Route: 048
     Dates: end: 20071009

REACTIONS (2)
  - APHASIA [None]
  - STUPOR [None]
